FAERS Safety Report 6329076-1 (Version None)
Quarter: 2009Q3

REPORT INFORMATION
  Report Type: 
  Country: None (occurrence: None)
  Receive Date: 20090826
  Receipt Date: 20090820
  Transmission Date: 20100115
  Serious: Yes (Other)
  Sender: FDA-Public Use
  Company Number: PHEH2009US09662

PATIENT
  Sex: Female

DRUGS (1)
  1. RECLAST [Suspect]
     Indication: OSTEOPOROSIS
     Dosage: UNK

REACTIONS (8)
  - BACK PAIN [None]
  - BONE PAIN [None]
  - DRUG HYPERSENSITIVITY [None]
  - DYSPHAGIA [None]
  - FEELING ABNORMAL [None]
  - MYALGIA [None]
  - PAIN IN EXTREMITY [None]
  - URINARY TRACT INFECTION [None]
